FAERS Safety Report 9399885 (Version 1)
Quarter: 2013Q3

REPORT INFORMATION
  Report Type: Spontaneous
  Country: US (occurrence: None)
  Receive Date: 20130710
  Receipt Date: 20130710
  Transmission Date: 20140515
  Serious: Yes (Other)
  Sender: FDA-Public Use
  Company Number: VAL_02615_2013

PATIENT
  Age: 25 Year
  Sex: Female

DRUGS (3)
  1. METOPROLOL [Suspect]
     Indication: CHEST PAIN
     Route: 048
     Dates: start: 20130624
  2. CONTROL PLP [Suspect]
     Dosage: 21 MG QD, TRANS-THERAPEUTIC-SYSTEM TRANSDERMAL
     Route: 062
     Dates: start: 20130624, end: 20130628
  3. BAYER ASPIRIN [Concomitant]

REACTIONS (2)
  - Chest pain [None]
  - Condition aggravated [None]
